FAERS Safety Report 8436942-X (Version None)
Quarter: 2012Q2

REPORT INFORMATION
  Report Type: 
  Country: None (occurrence: None)
  Receive Date: 20120614
  Receipt Date: 20120602
  Transmission Date: 20120825
  Serious: Yes (Other)
  Sender: FDA-Public Use
  Company Number: US-BAYER-2012-056705

PATIENT
  Age: 9 Year
  Sex: Female
  Weight: 36 kg

DRUGS (1)
  1. RID 1-2-3 SYSTEM [Suspect]
     Indication: LICE INFESTATION
     Route: 061

REACTIONS (6)
  - OCULAR HYPERAEMIA [None]
  - EYE IRRITATION [None]
  - CORNEAL ABRASION [None]
  - EYE SWELLING [None]
  - CONJUNCTIVAL HYPERAEMIA [None]
  - EYE PAIN [None]
